FAERS Safety Report 8071028-8 (Version None)
Quarter: 2012Q1

REPORT INFORMATION
  Report Type: 
  Country: None (occurrence: None)
  Receive Date: 20120125
  Receipt Date: 20120120
  Transmission Date: 20120608
  Serious: No
  Sender: FDA-Public Use
  Company Number: US-BAYER-2012-007860

PATIENT

DRUGS (2)
  1. ALEVE (CAPLET) [Suspect]
  2. ASTHMA MEDICINE [Concomitant]

REACTIONS (2)
  - DISCOMFORT [None]
  - FEELING JITTERY [None]
